FAERS Safety Report 4326130-0 (Version None)
Quarter: 2004Q1

REPORT INFORMATION
  Report Type: 
  Country: None (occurrence: None)
  Receive Date: 20040324
  Receipt Date: 20040312
  Transmission Date: 20041129
  Serious: Yes (Hospitalization)
  Sender: FDA-Public Use
  Company Number: FR-JNJFOC-20040303034

PATIENT
  Age: 56 Year
  Sex: Female

DRUGS (2)
  1. REMICADE [Suspect]
     Indication: CROHN'S DISEASE
     Dosage: 5 MG/KG, INTRAVENOUS
     Route: 042
     Dates: start: 20031001
  2. REMICADE [Suspect]
     Indication: FISTULA
     Dosage: 5 MG/KG, INTRAVENOUS
     Route: 042
     Dates: start: 20031001

REACTIONS (4)
  - ARTHRALGIA [None]
  - HEPATITIS [None]
  - LUPUS-LIKE SYNDROME [None]
  - PLEURAL EFFUSION [None]
